FAERS Safety Report 25979031 (Version 1)
Quarter: 2025Q4

REPORT INFORMATION
  Report Type: Spontaneous
  Country: US (occurrence: None)
  Receive Date: 20251029
  Receipt Date: 20251029
  Transmission Date: 20260118
  Serious: Yes (Hospitalization)
  Sender: FDA-CTU
  Company Number: None

PATIENT
  Sex: Female

DRUGS (1)
  1. ICATIBANT ACETATE [Suspect]
     Active Substance: ICATIBANT ACETATE
     Indication: Complement factor abnormal
     Dosage: 30 MG/ML AS NEEEDED SUBCUTANEOUS
     Route: 058
     Dates: start: 20240229

REACTIONS (4)
  - Swelling face [None]
  - Pharyngeal swelling [None]
  - Peripheral swelling [None]
  - Limb injury [None]
